FAERS Safety Report 9910712 (Version 5)
Quarter: 2014Q2

REPORT INFORMATION
  Report Type: Spontaneous
  Country: JP (occurrence: JP)
  Receive Date: 20140219
  Receipt Date: 20140414
  Transmission Date: 20141212
  Serious: Yes (Life-Threatening, Hospitalization, Other)
  Sender: FDA-Public Use
  Company Number: JP-ASTRAZENECA-2014SE11409

PATIENT
  Age: 26497 Day
  Sex: Male
  Weight: 62 kg

DRUGS (8)
  1. CRESTOR [Suspect]
     Indication: DYSLIPIDAEMIA
     Route: 048
     Dates: start: 20131214, end: 20140215
  2. TENORMIN [Suspect]
     Indication: ANGINA PECTORIS
     Route: 048
     Dates: start: 20131203, end: 20140121
  3. BLOPRESS [Suspect]
     Route: 048
  4. NEXIUM [Suspect]
     Route: 048
  5. SIGMART [Concomitant]
     Indication: ANGINA PECTORIS
     Route: 048
     Dates: start: 20131203, end: 20140121
  6. BAYASPIRIN [Concomitant]
     Indication: ANGINA PECTORIS
     Route: 048
     Dates: start: 20131214
  7. PLAVIX [Concomitant]
     Indication: ANGINA PECTORIS
     Route: 048
     Dates: start: 20131214
  8. X-RAY CONTRAST AGENTS [Concomitant]
     Dosage: DOSE UNKNOWN
     Route: 065

REACTIONS (4)
  - Renal failure acute [Recovering/Resolving]
  - Multi-organ failure [Unknown]
  - Rhabdomyolysis [Recovering/Resolving]
  - Nasopharyngitis [Unknown]
